FAERS Safety Report 7855298-4 (Version None)
Quarter: 2011Q4

REPORT INFORMATION
  Report Type: 
  Country: None (occurrence: None)
  Receive Date: 20111026
  Receipt Date: 20111011
  Transmission Date: 20120403
  Serious: Yes (Other)
  Sender: FDA-Public Use
  Company Number: US-GILEAD-2011-0036754

PATIENT
  Age: 26 Year
  Sex: Female

DRUGS (2)
  1. EMTRICITABINE/TENOFOVIR DISOPROXIL FUMARATE [Suspect]
     Indication: HIV INFECTION
     Dates: start: 20100701, end: 20101021
  2. MEDROXYPROGESTERONE ACETATE [Concomitant]
     Dates: start: 20100315, end: 20100901

REACTIONS (1)
  - ABORTION SPONTANEOUS [None]
